FAERS Safety Report 10997535 (Version 1)
Quarter: 2015Q2

REPORT INFORMATION
  Report Type: Spontaneous
  Country: US (occurrence: None)
  Receive Date: 20150407
  Receipt Date: 20150407
  Transmission Date: 20150821
  Serious: Yes (Disabling, Other)
  Sender: FDA-Public Use
  Company Number: None

PATIENT
  Age: 74 Year
  Sex: Female
  Weight: 64.86 kg

DRUGS (8)
  1. VITAMIN D [Concomitant]
     Active Substance: CHOLECALCIFEROL
  2. CEFADROXIL. [Suspect]
     Active Substance: CEFADROXIL
     Indication: PROPHYLAXIS
     Dosage: 1 CAPSULE
     Route: 048
     Dates: start: 20150320, end: 20150320
  3. PROBIOTICS [Concomitant]
     Active Substance: PROBIOTICS NOS
  4. COQ10 [Concomitant]
     Active Substance: UBIDECARENONE
  5. CEFADROXIL. [Suspect]
     Active Substance: CEFADROXIL
     Indication: POST PROCEDURAL INFECTION
     Dosage: 1 CAPSULE
     Route: 048
     Dates: start: 20150320, end: 20150320
  6. LEVOTHYROXINE [Concomitant]
     Active Substance: LEVOTHYROXINE
  7. MULTIVITAMIN [Concomitant]
     Active Substance: VITAMINS
  8. SIMVASTATIN. [Concomitant]
     Active Substance: SIMVASTATIN

REACTIONS (2)
  - Abasia [None]
  - Decreased activity [None]

NARRATIVE: CASE EVENT DATE: 20150320
